FAERS Safety Report 7556666-0 (Version None)
Quarter: 2011Q2

REPORT INFORMATION
  Report Type: 
  Country: None (occurrence: None)
  Receive Date: 20110620
  Receipt Date: 20110613
  Transmission Date: 20111010
  Serious: Yes (Hospitalization, Disabling, Other)
  Sender: FDA-Public Use
  Company Number: GB-SANOFI-AVENTIS-2011SA037317

PATIENT
  Age: 66 Year
  Sex: Male

DRUGS (8)
  1. METHOTREXATE [Suspect]
     Indication: RHEUMATOID ARTHRITIS
     Route: 048
     Dates: end: 20110516
  2. ALLOPURINOL [Concomitant]
  3. ATENOLOL [Concomitant]
  4. AMITRIPTYLINE HYDROCHLORIDE [Concomitant]
  5. DIHYDROCODEINE BITARTRATE INJ [Concomitant]
  6. LEFLUNOMIDE [Suspect]
     Indication: RHEUMATOID ARTHRITIS
     Route: 048
     Dates: start: 20110427, end: 20110602
  7. ERYTHROMYCIN [Suspect]
     Indication: WOUND INFECTION
     Route: 048
     Dates: start: 20110524, end: 20110602
  8. PREDNISOLONE [Concomitant]

REACTIONS (5)
  - PROTHROMBIN TIME [None]
  - WHITE BLOOD CELL COUNT DECREASED [None]
  - HEPATIC FAILURE [None]
  - VASCULITIS [None]
  - RENAL FAILURE ACUTE [None]
